FAERS Safety Report 20969018 (Version 1)
Quarter: 2022Q2

REPORT INFORMATION
  Report Type: Spontaneous
  Country: CN (occurrence: CN)
  Receive Date: 20220616
  Receipt Date: 20220616
  Transmission Date: 20220721
  Serious: Yes (Other)
  Sender: FDA-Public Use
  Company Number: CN-ZAILAB-ZAI202200595

PATIENT
  Age: 84 Year
  Sex: Male
  Weight: 55 kg

DRUGS (2)
  1. QINLOCK [Suspect]
     Active Substance: RIPRETINIB
     Indication: Gastrointestinal stromal tumour
     Dosage: 150 MG, QD
     Route: 048
     Dates: start: 20210924
  2. QINLOCK [Suspect]
     Active Substance: RIPRETINIB
     Dosage: 50 MG, QD
     Route: 048
     Dates: start: 202201, end: 20220318

REACTIONS (2)
  - Cardiac dysfunction [Unknown]
  - Condition aggravated [Unknown]

NARRATIVE: CASE EVENT DATE: 20220101
